FAERS Safety Report 5412628-0 (Version None)
Quarter: 2007Q3

REPORT INFORMATION
  Report Type: 
  Country: None (occurrence: None)
  Receive Date: 20070809
  Receipt Date: 20070724
  Transmission Date: 20080115
  Serious: Yes (Death)
  Sender: FDA-Public Use
  Company Number: 100#08#2007-02835

PATIENT
  Age: 42 Year
  Sex: Female

DRUGS (2)
  1. CITALOPRAM HYDROBROMIDE [Suspect]
     Indication: SUICIDE ATTEMPT
     Dosage: 1.2G (60MG TABLETS X 20); ONCE
  2. MOCLOBEMIDE (MOCLOBEMIDE) (MOCLOBEMIDE) (TABLETS) [Suspect]
     Indication: SUICIDE ATTEMPT
     Dosage: 6G (300MG TABLETS X 20); ONCE
     Route: 048

REACTIONS (16)
  - ANGIOPATHY [None]
  - CARDIAC ARREST [None]
  - COAGULOPATHY [None]
  - CONVULSION [None]
  - DISORIENTATION [None]
  - ELECTROCARDIOGRAM QT PROLONGED [None]
  - HYPERTHERMIA [None]
  - HYPOTONIA [None]
  - MULTI-ORGAN FAILURE [None]
  - MULTIPLE DRUG OVERDOSE INTENTIONAL [None]
  - MYDRIASIS [None]
  - SEROTONIN SYNDROME [None]
  - SINUS TACHYCARDIA [None]
  - SOMNOLENCE [None]
  - TRISMUS [None]
  - VOMITING [None]
